FAERS Safety Report 25987900 (Version 1)
Quarter: 2025Q4

REPORT INFORMATION
  Report Type: Report from Study
  Country: US (occurrence: US)
  Receive Date: 20251103
  Receipt Date: 20251103
  Transmission Date: 20260117
  Serious: No
  Sender: AVERITAS
  Company Number: US-GRUNENTHAL-2025-124239

PATIENT
  Age: 72 Year
  Sex: Female

DRUGS (1)
  1. QUTENZA [Suspect]
     Active Substance: CAPSAICIN
     Indication: Diabetic neuropathy
     Dosage: UNK
     Route: 061
     Dates: start: 20251022, end: 20251022

REACTIONS (1)
  - Burning sensation [Not Recovered/Not Resolved]
